FAERS Safety Report 13919310 (Version 1)
Quarter: 2017Q3

REPORT INFORMATION
  Report Type: Spontaneous
  Country: US (occurrence: US)
  Receive Date: 20170830
  Receipt Date: 20170830
  Transmission Date: 20171127
  Serious: Yes (Hospitalization, Other)
  Sender: FDA-Public Use
  Company Number: US-ALEMBIC PHARMACUETICALS LIMITED-2017SCAL000693

PATIENT

DRUGS (2)
  1. LITHIUM CARBONATE. [Suspect]
     Active Substance: LITHIUM CARBONATE
     Indication: BIPOLAR DISORDER
     Dosage: UNK
  2. LISINOPRIL. [Suspect]
     Active Substance: LISINOPRIL
     Indication: HYPERTENSION
     Dosage: UNK

REACTIONS (14)
  - Memory impairment [Not Recovered/Not Resolved]
  - Myoclonus [Unknown]
  - Toxicity to various agents [Recovered/Resolved]
  - Acute kidney injury [Unknown]
  - Dysarthria [Unknown]
  - Confusional state [Unknown]
  - Incontinence [Unknown]
  - Tremor [Unknown]
  - Hyperreflexia [Unknown]
  - Ataxia [Not Recovered/Not Resolved]
  - Muscle contractions involuntary [Unknown]
  - Lethargy [Unknown]
  - Somnolence [Unknown]
  - Agitation [Unknown]
